FAERS Safety Report 11813506 (Version 1)
Quarter: 2015Q4

REPORT INFORMATION
  Report Type: Spontaneous
  Country: DE (occurrence: DE)
  Receive Date: 20151209
  Receipt Date: 20151209
  Transmission Date: 20160305
  Serious: Yes (Other)
  Sender: FDA-Public Use
  Company Number: DE-SUN PHARMACEUTICAL INDUSTRIES LTD-2015R1-107371

PATIENT
  Sex: Female
  Weight: 2.5 kg

DRUGS (3)
  1. PAROXETINE [Suspect]
     Active Substance: PAROXETINE\PAROXETINE HYDROCHLORIDE
     Indication: DEPRESSION
     Dosage: 40 MG, DAILY
     Route: 064
     Dates: start: 20140920, end: 20150621
  2. FOLSAURE [Concomitant]
     Active Substance: FOLIC ACID
     Indication: PROPHYLAXIS OF NEURAL TUBE DEFECT
     Dosage: UNK
     Route: 064
     Dates: start: 20140920, end: 20150621
  3. CLOZAPINE. [Suspect]
     Active Substance: CLOZAPINE
     Indication: DEPRESSION
     Dosage: 40 MG, DAILY
     Route: 064
     Dates: start: 20140920, end: 20150621

REACTIONS (1)
  - Small for dates baby [Not Recovered/Not Resolved]

NARRATIVE: CASE EVENT DATE: 20150621
